FAERS Safety Report 5380026-4 (Version None)
Quarter: 2007Q3

REPORT INFORMATION
  Report Type: 
  Country: None (occurrence: None)
  Receive Date: 20070706
  Receipt Date: 20070627
  Transmission Date: 20080115
  Serious: Yes (Other)
  Sender: FDA-Public Use
  Company Number: US-JNJFOC-20070606834

PATIENT
  Sex: Male
  Weight: 59 kg

DRUGS (2)
  1. INFLIXIMAB [Suspect]
     Indication: CROHN'S DISEASE
     Route: 042
  2. ZELNORM [Concomitant]

REACTIONS (1)
  - EXPOSURE TO COMMUNICABLE DISEASE [None]
